FAERS Safety Report 8080488-8 (Version None)
Quarter: 2012Q1

REPORT INFORMATION
  Report Type: 
  Country: None (occurrence: None)
  Receive Date: 20120130
  Receipt Date: 20120119
  Transmission Date: 20120608
  Serious: Yes (Hospitalization)
  Sender: FDA-Public Use
  Company Number: IT-TEVA-319660ISR

PATIENT
  Sex: Female

DRUGS (13)
  1. ACETAMINOPHEN AND CODEINE PHOSPHATE [Concomitant]
  2. ALLOPURINOL [Concomitant]
  3. PAFINUR [Concomitant]
  4. NORVASC [Concomitant]
  5. LASIX [Concomitant]
  6. DULOXETINE HYDROCHLORIDE [Concomitant]
  7. PANTOPRAZOLE [Concomitant]
  8. COUMADIN [Concomitant]
  9. ZOLPIDEM [Concomitant]
  10. HUMALOG [Concomitant]
     Dosage: 100U/ML
  11. CLARITHROMYCIN [Suspect]
     Dosage: 1 GRAM;
     Route: 048
     Dates: start: 20111129, end: 20111212
  12. LANTUS [Concomitant]
     Dosage: 100 IU/ML
  13. RAMIPRIL [Concomitant]

REACTIONS (4)
  - RENAL FAILURE CHRONIC [None]
  - PRURITUS [None]
  - SKIN EXFOLIATION [None]
  - DEHYDRATION [None]
